FAERS Safety Report 25934371 (Version 5)
Quarter: 2025Q4

REPORT INFORMATION
  Report Type: Report from Study
  Country: US (occurrence: US)
  Receive Date: 20251017
  Receipt Date: 20251230
  Transmission Date: 20260118
  Serious: No
  Sender: UNITED THERAPEUTICS
  Company Number: US-UNITED THERAPEUTICS-UNT-2025-034092

PATIENT
  Sex: Female

DRUGS (12)
  1. TREPROSTINIL [Suspect]
     Active Substance: TREPROSTINIL
     Indication: Pulmonary arterial hypertension
     Dosage: 16 ?G, UNK
     Dates: start: 20250930, end: 20251005
  2. TREPROSTINIL [Suspect]
     Active Substance: TREPROSTINIL
     Indication: Connective tissue disorder
     Dosage: 32 ?G, QID
     Dates: start: 20251006, end: 202510
  3. TREPROSTINIL [Suspect]
     Active Substance: TREPROSTINIL
     Dosage: 16 ?G, UNK (RESTARTED)
  4. TREPROSTINIL [Suspect]
     Active Substance: TREPROSTINIL
     Dosage: 32 ?G, QID
     Dates: start: 202510, end: 20251029
  5. TYVASO DPI [Suspect]
     Active Substance: TREPROSTINIL
     Indication: Connective tissue disorder
     Dosage: UNK
  6. TYVASO DPI [Suspect]
     Active Substance: TREPROSTINIL
     Indication: Pulmonary arterial hypertension
  7. TYVASO DPI [Suspect]
     Active Substance: TREPROSTINIL
     Indication: Pulmonary arterial hypertension
     Dosage: UNK
  8. TYVASO DPI [Suspect]
     Active Substance: TREPROSTINIL
     Indication: Connective tissue disorder
  9. TYVASO DPI [Suspect]
     Active Substance: TREPROSTINIL
     Indication: Pulmonary arterial hypertension
     Dosage: UNK
  10. TYVASO DPI [Suspect]
     Active Substance: TREPROSTINIL
     Indication: Connective tissue disorder
  11. IMODIUM [Suspect]
     Active Substance: LOPERAMIDE HYDROCHLORIDE
     Indication: Diarrhoea
     Dosage: UNK
  12. PANTOPRAZOLE [Suspect]
     Active Substance: PANTOPRAZOLE
     Indication: Gastrooesophageal reflux disease
     Dosage: UNK

REACTIONS (11)
  - Muscular weakness [Not Recovered/Not Resolved]
  - Limb discomfort [Not Recovered/Not Resolved]
  - Dyspnoea [Recovering/Resolving]
  - Diarrhoea [Recovering/Resolving]
  - Dyspnoea exertional [Recovering/Resolving]
  - Gastrooesophageal reflux disease [Not Recovered/Not Resolved]
  - Constipation [Recovering/Resolving]
  - Feeling abnormal [Recovered/Resolved]
  - Therapy non-responder [Unknown]
  - Packaging design issue [Unknown]
  - Product label confusion [Recovered/Resolved]

NARRATIVE: CASE EVENT DATE: 20250101
